FAERS Safety Report 9687252 (Version 2)
Quarter: 2013Q4

REPORT INFORMATION
  Report Type: Report from Study
  Country: US (occurrence: US)
  Receive Date: 20131113
  Receipt Date: 20131122
  Transmission Date: 20140711
  Serious: Yes (Other)
  Sender: FDA-Public Use
  Company Number: US-AMGEN-USANI2013079143

PATIENT
  Age: 63 Year
  Sex: Female

DRUGS (13)
  1. XGEVA [Suspect]
     Indication: NEOPLASM MALIGNANT
     Dosage: 120 MG, Q3WK
     Route: 058
     Dates: start: 20120125, end: 20121205
  2. DENOSUMAB [Suspect]
     Indication: PRODUCT USED FOR UNKNOWN INDICATION
     Dosage: UNK
     Route: 065
  3. ARANESP [Concomitant]
     Dosage: ONCE
     Route: 065
     Dates: start: 20130814, end: 20130814
  4. CARBOPLATIN [Concomitant]
  5. PEMETREXED [Concomitant]
  6. BEVACIZUMAB [Concomitant]
  7. AMLODIPINE BESYLATE [Concomitant]
     Dosage: 10 MG, QD
     Route: 048
     Dates: start: 20130827
  8. CALCIUM CARBONATE [Concomitant]
     Dosage: 600 MG, BID
     Route: 048
     Dates: start: 20121114
  9. POTASSIUM CHLORIDE [Concomitant]
     Dosage: 10 MEQ, QD
     Route: 048
     Dates: start: 20130703
  10. DECADRON                           /00016001/ [Concomitant]
     Dosage: 8 MG/ONCE
     Dates: start: 20130814, end: 20130814
  11. GEMZAR [Concomitant]
     Dosage: 1140 MG, UNK
     Dates: start: 20130814, end: 20130814
  12. HEPARIN [Concomitant]
     Dosage: 300/500 ONE DOSE
     Dates: start: 20130814, end: 20130814
  13. SODIUM CHLORIDE [Concomitant]
     Dosage: 10 ML/500 ML/ ONE DOSE
     Dates: start: 20130814, end: 20130814

REACTIONS (1)
  - Osteonecrosis of jaw [Not Recovered/Not Resolved]
